FAERS Safety Report 6871167-0 (Version None)
Quarter: 2010Q3

REPORT INFORMATION
  Report Type: 
  Country: None (occurrence: None)
  Receive Date: 20100723
  Receipt Date: 20100712
  Transmission Date: 20110219
  Serious: Yes (Hospitalization, Other)
  Sender: FDA-Public Use
  Company Number: US-PFIZER INC-2010038404

PATIENT
  Sex: Female

DRUGS (7)
  1. CHANTIX [Suspect]
     Indication: SMOKING CESSATION THERAPY
     Dosage: UNK
     Route: 048
     Dates: start: 20080703, end: 20081106
  2. MELOXICAM [Concomitant]
     Indication: ARTHRITIS
     Dosage: UNK
     Dates: start: 20000101
  3. FLUOXETINE [Concomitant]
     Indication: ANXIETY
     Dosage: UNK
     Dates: start: 20030101
  4. FLUOXETINE [Concomitant]
     Indication: DEPRESSION
  5. DARVOCET [Concomitant]
     Indication: PAIN
     Dosage: UNK
     Dates: start: 20040101
  6. DETROL [Concomitant]
     Indication: HYPERTONIC BLADDER
     Dosage: UNK
     Dates: start: 20050101, end: 20090101
  7. PROPOXYPHENE HCL [Concomitant]
     Indication: PAIN
     Dosage: UNK
     Dates: start: 20030101, end: 20090101

REACTIONS (9)
  - ANXIETY [None]
  - DEPRESSION [None]
  - DISORIENTATION [None]
  - DIZZINESS [None]
  - MENTAL DISORDER [None]
  - MENTAL STATUS CHANGES [None]
  - NIGHTMARE [None]
  - VERTIGO [None]
  - VISUAL IMPAIRMENT [None]
